FAERS Safety Report 9559755 (Version 2)
Quarter: 2013Q3

REPORT INFORMATION
  Report Type: Spontaneous
  Country: CA (occurrence: CA)
  Receive Date: 20130927
  Receipt Date: 20130927
  Transmission Date: 20140515
  Serious: Yes (Hospitalization, Disabling)
  Sender: FDA-Public Use
  Company Number: CA-JNJFOC-20111108979

PATIENT
  Age: 16 Year
  Sex: Male
  Weight: 57.8 kg

DRUGS (3)
  1. REMICADE [Suspect]
     Indication: CROHN^S DISEASE
     Route: 042
  2. METRONIDAZOLE [Suspect]
     Indication: CROHN^S DISEASE
     Dosage: 14 DAYS PER MONTH
     Route: 048
     Dates: end: 201110
  3. METHOTREXATE [Concomitant]

REACTIONS (3)
  - Neuropathy peripheral [Recovered/Resolved]
  - Double stranded DNA antibody [Unknown]
  - Erythema [Unknown]
